FAERS Safety Report 24189602 (Version 1)
Quarter: 2024Q3

REPORT INFORMATION
  Report Type: Spontaneous
  Country: IN (occurrence: IN)
  Receive Date: 20240808
  Receipt Date: 20240808
  Transmission Date: 20241017
  Serious: Yes (Death)
  Sender: PFIZER
  Company Number: IN-PFIZER INC-PV202400083479

PATIENT
  Age: 51 Year
  Sex: Male

DRUGS (1)
  1. CRIZOTINIB [Suspect]
     Active Substance: CRIZOTINIB
     Dosage: 250 MG, 2X/DAY
     Route: 048
     Dates: start: 202306, end: 20240801

REACTIONS (3)
  - Cardiopulmonary failure [Fatal]
  - Peripheral swelling [Unknown]
  - Neoplasm progression [Unknown]
